FAERS Safety Report 11238949 (Version 2)
Quarter: 2015Q3

REPORT INFORMATION
  Report Type: Spontaneous
  Country: US (occurrence: US)
  Receive Date: 20150706
  Receipt Date: 20150709
  Transmission Date: 20151125
  Serious: Yes (Death)
  Sender: FDA-Public Use
  Company Number: US-009507513-1507USA001614

PATIENT
  Age: 87 Year
  Sex: Female

DRUGS (1)
  1. JANUVIA [Suspect]
     Active Substance: SITAGLIPTIN PHOSPHATE
     Indication: TYPE 2 DIABETES MELLITUS
     Dosage: 50 MG, ONCE DAILY
     Route: 048
     Dates: start: 2010

REACTIONS (1)
  - Death [Fatal]

NARRATIVE: CASE EVENT DATE: 20150609
